FAERS Safety Report 7999454-3 (Version None)
Quarter: 2011Q4

REPORT INFORMATION
  Report Type: 
  Country: None (occurrence: None)
  Receive Date: 20111221
  Receipt Date: 20111216
  Transmission Date: 20120403
  Serious: No
  Sender: FDA-Public Use
  Company Number: US-PFIZER INC-2011308844

PATIENT
  Sex: Male

DRUGS (2)
  1. PRISTIQ [Suspect]
  2. EFFEXOR [Suspect]

REACTIONS (1)
  - DIZZINESS [None]
